FAERS Safety Report 7502806-9 (Version None)
Quarter: 2011Q2

REPORT INFORMATION
  Report Type: 
  Country: None (occurrence: None)
  Receive Date: 20110525
  Receipt Date: 20110518
  Transmission Date: 20111010
  Serious: Yes (Other)
  Sender: FDA-Public Use
  Company Number: BE-GENZYME-FLUD-1001166

PATIENT
  Sex: Female

DRUGS (5)
  1. FLUDARA [Suspect]
     Indication: ACUTE BIPHENOTYPIC LEUKAEMIA
  2. CYCLOSPORINE [Concomitant]
     Indication: IMMUNOSUPPRESSANT DRUG THERAPY
     Dosage: UNK
     Route: 065
  3. FLUDARA [Suspect]
     Indication: STEM CELL TRANSPLANT
     Dosage: 30 MG/M2 X 3, UNK
     Route: 065
  4. MYCOPHENOLATE MOFETIL [Concomitant]
     Indication: IMMUNOSUPPRESSANT DRUG THERAPY
     Dosage: UNK
     Route: 065
  5. VORICONAZOLE [Concomitant]
     Indication: BRONCHOPULMONARY ASPERGILLOSIS
     Dosage: UNK
     Route: 065

REACTIONS (4)
  - CHOLECYSTITIS ACUTE [None]
  - CHRONIC GRAFT VERSUS HOST DISEASE [None]
  - PYREXIA [None]
  - PNEUMONIA STREPTOCOCCAL [None]
